FAERS Safety Report 17691653 (Version 1)
Quarter: 2020Q2

REPORT INFORMATION
  Report Type: Spontaneous
  Country: CA (occurrence: CA)
  Receive Date: 20200422
  Receipt Date: 20200422
  Transmission Date: 20200714
  Serious: Yes (Other)
  Sender: FDA-Public Use
  Company Number: CA-ELI_LILLY_AND_COMPANY-CA202004004246

PATIENT
  Age: 73 Year
  Sex: Female
  Weight: 86 kg

DRUGS (5)
  1. HUMALOG [Suspect]
     Active Substance: INSULIN LISPRO
     Indication: DIABETES MELLITUS
     Dosage: UNK UNK, UNKNOWN
     Route: 065
  2. TRESIBA [Suspect]
     Active Substance: INSULIN DEGLUDEC
     Indication: DIABETES MELLITUS
     Dosage: UNK UNK, UNKNOWN
     Route: 065
  3. HUMALOG [Suspect]
     Active Substance: INSULIN LISPRO
     Dosage: 42 INTERNATIONAL UNIT, TID
     Route: 058
  4. JARDIANCE [Suspect]
     Active Substance: EMPAGLIFLOZIN
     Indication: DIABETES MELLITUS
     Dosage: 10 MG, DAILY
     Route: 048
  5. TRESIBA [Suspect]
     Active Substance: INSULIN DEGLUDEC
     Dosage: 28 INTERNATIONAL UNIT, DAILY
     Route: 058

REACTIONS (3)
  - Vaginal haemorrhage [Not Recovered/Not Resolved]
  - Vulvovaginal discomfort [Not Recovered/Not Resolved]
  - Dermatitis allergic [Not Recovered/Not Resolved]
